FAERS Safety Report 23036876 (Version 2)
Quarter: 2024Q2

REPORT INFORMATION
  Report Type: Spontaneous
  Country: JP (occurrence: JP)
  Receive Date: 20231006
  Receipt Date: 20240613
  Transmission Date: 20240716
  Serious: Yes (Death, Other)
  Sender: FDA-Public Use
  Company Number: JP-002147023-NVSJ2023JP014592

PATIENT
  Age: 22 Year
  Sex: Male

DRUGS (1)
  1. TISAGENLECLEUCEL [Suspect]
     Active Substance: TISAGENLECLEUCEL
     Indication: Acute lymphocytic leukaemia recurrent
     Dosage: UNK
     Route: 041

REACTIONS (6)
  - Encephalitis [Fatal]
  - Neurotoxicity [Fatal]
  - Cytopenia [Unknown]
  - Cytokine release syndrome [Unknown]
  - Neutropenia [Unknown]
  - Pneumonia fungal [Unknown]
